FAERS Safety Report 10780603 (Version 1)
Quarter: 2015Q1

REPORT INFORMATION
  Report Type: Spontaneous
  Country: US (occurrence: US)
  Receive Date: 20150210
  Receipt Date: 20150210
  Transmission Date: 20150721
  Serious: No
  Sender: FDA-Public Use
  Company Number: US-PFIZER INC-2015050773

PATIENT
  Age: 57 Year
  Sex: Female
  Weight: 73.92 kg

DRUGS (12)
  1. XELJANZ [Suspect]
     Active Substance: TOFACITINIB CITRATE
     Indication: RHEUMATOID ARTHRITIS
     Dosage: 5 MG, 2X/DAY
     Route: 048
  2. METHOTREXATE [Concomitant]
     Active Substance: METHOTREXATE
     Dosage: UNK
  3. VIMOVO [Concomitant]
     Active Substance: ESOMEPRAZOLE MAGNESIUM\NAPROXEN
     Dosage: 500-20MG
  4. PROPRANOLOL [Concomitant]
     Active Substance: PROPRANOLOL\PROPRANOLOL HYDROCHLORIDE
     Dosage: 80 MG
  5. BUPROPION [Concomitant]
     Active Substance: BUPROPION
     Dosage: 150 MG
  6. VYTORIN [Concomitant]
     Active Substance: EZETIMIBE\SIMVASTATIN
     Dosage: 10MG-80MG
  7. VITAMIN D3 [Concomitant]
     Active Substance: CHOLECALCIFEROL
     Dosage: 1000 IU
  8. FISH OIL [Concomitant]
     Active Substance: FISH OIL
  9. LYRICA [Concomitant]
     Active Substance: PREGABALIN
     Dosage: 100 MG
  10. FOLIC ACID. [Concomitant]
     Active Substance: FOLIC ACID
  11. RESTASIS EMU [Concomitant]
     Dosage: 0.05 %, UNK
  12. CALCIUM [Concomitant]
     Active Substance: CALCIUM
     Dosage: 500 MG

REACTIONS (2)
  - Dysphonia [Recovering/Resolving]
  - Nasopharyngitis [Recovering/Resolving]
